FAERS Safety Report 6644482-3 (Version None)
Quarter: 2010Q1

REPORT INFORMATION
  Report Type: 
  Country: None (occurrence: None)
  Receive Date: 20100317
  Receipt Date: 20100216
  Transmission Date: 20100710
  Serious: Yes (Other)
  Sender: FDA-Public Use
  Company Number: JP-SOLVAY-00310000852

PATIENT
  Age: 30 Year
  Sex: Male

DRUGS (3)
  1. LUVOX [Suspect]
     Indication: INTENTIONAL OVERDOSE
     Dosage: ORAL; 5200 MILLIGRAM(S), ORAL
     Route: 048
  2. LUVOX [Suspect]
     Indication: OBSESSIVE-COMPULSIVE DISORDER
     Dosage: ORAL; 5200 MILLIGRAM(S), ORAL
     Route: 048
  3. PAROXETINE HCL [Suspect]
     Indication: INTENTIONAL OVERDOSE
     Dosage: 680 MILLIGRAM(S), ORAL
     Route: 048

REACTIONS (11)
  - ALTERED STATE OF CONSCIOUSNESS [None]
  - CONVULSION [None]
  - HYPERHIDROSIS [None]
  - INTENTIONAL OVERDOSE [None]
  - LISTLESS [None]
  - MYDRIASIS [None]
  - MYOCLONUS [None]
  - NEUROLEPTIC MALIGNANT SYNDROME [None]
  - PYREXIA [None]
  - RESPIRATORY FAILURE [None]
  - SEROTONIN SYNDROME [None]
